FAERS Safety Report 6818639-2 (Version None)
Quarter: 2010Q3

REPORT INFORMATION
  Report Type: 
  Country: None (occurrence: None)
  Receive Date: 20100706
  Receipt Date: 20090204
  Transmission Date: 20110219
  Serious: No
  Sender: FDA-Public Use
  Company Number: US-PFIZER INC-2009165785

PATIENT
  Sex: Female
  Weight: 63.49 kg

DRUGS (1)
  1. AZITHROMYCIN [Suspect]
     Indication: INFLUENZA LIKE ILLNESS
     Dosage: 250 MG, 2X/DAY
     Route: 048
     Dates: start: 20090121, end: 20090121

REACTIONS (2)
  - DIZZINESS [None]
  - TINNITUS [None]
